FAERS Safety Report 5775567-1 (Version None)
Quarter: 2008Q2

REPORT INFORMATION
  Report Type: 
  Country: None (occurrence: None)
  Receive Date: 20080617
  Receipt Date: 20080605
  Transmission Date: 20081010
  Serious: Yes (Other)
  Sender: FDA-Public Use
  Company Number: US-SANOFI-SYNTHELABO-A03200802310

PATIENT
  Age: 34 Year
  Sex: Male

DRUGS (7)
  1. TRAZODONE HCL [Interacting]
     Indication: DRUG USE FOR UNKNOWN INDICATION
     Dosage: 70 TO 150 MG DAILY
     Route: 065
  2. CYMBALTA [Interacting]
     Indication: DRUG USE FOR UNKNOWN INDICATION
     Route: 065
  3. ZOLOFT [Interacting]
     Indication: DRUG USE FOR UNKNOWN INDICATION
     Route: 065
  4. PHENERGAN [Interacting]
     Indication: DRUG USE FOR UNKNOWN INDICATION
     Dosage: UNK
     Route: 065
  5. ALCOHOL [Interacting]
     Indication: DRUG USE FOR UNKNOWN INDICATION
     Dosage: SIX TO EIGHT DRINKS OVER A 40 MINUTE PERIOD
     Route: 048
  6. XANAX [Interacting]
     Indication: DRUG USE FOR UNKNOWN INDICATION
     Dosage: LARGE DOSES; APPROXIMATELY 4 TO 6 MG
     Route: 065
  7. AMBIEN [Suspect]
     Indication: DRUG USE FOR UNKNOWN INDICATION
     Route: 048

REACTIONS (4)
  - AMNESIA [None]
  - DRUG ABUSE [None]
  - ILL-DEFINED DISORDER [None]
  - IMPRISONMENT [None]
